FAERS Safety Report 14334201 (Version 2)
Quarter: 2018Q1

REPORT INFORMATION
  Report Type: Report from Study
  Country: US (occurrence: US)
  Receive Date: 20171228
  Receipt Date: 20180130
  Transmission Date: 20180509
  Serious: Yes (Death, Hospitalization)
  Sender: FDA-Public Use
  Company Number: US-BAYER-2017-245470

PATIENT
  Age: 59 Year
  Sex: Male

DRUGS (2)
  1. NEXAVAR [Suspect]
     Active Substance: SORAFENIB
     Indication: HEPATOCELLULAR CARCINOMA
     Dosage: 400 MG, QD
     Route: 048
     Dates: start: 20171031, end: 2017
  2. NEXAVAR [Suspect]
     Active Substance: SORAFENIB
     Indication: HEPATOCELLULAR CARCINOMA
     Dosage: 600 MG DAILY (200 MG IN MORNING AND 400 MG EVERY EVENING FOR 1 WEEK, THEN INCREASE TO 2 TAB BID)
     Route: 048
     Dates: start: 2017, end: 2017

REACTIONS (6)
  - Fluid intake reduced [None]
  - Death [Fatal]
  - Pneumonia [None]
  - Feeding disorder [None]
  - Off label use [None]
  - Asthenia [None]

NARRATIVE: CASE EVENT DATE: 2017
